FAERS Safety Report 7134266-4 (Version None)
Quarter: 2010Q4

REPORT INFORMATION
  Report Type: 
  Country: None (occurrence: None)
  Receive Date: 20101203
  Receipt Date: 20101130
  Transmission Date: 20110411
  Serious: Yes (Death, Hospitalization, Other)
  Sender: FDA-Public Use
  Company Number: NL-MPIJNJ-2005-02388

PATIENT
  Sex: Female
  Weight: 60 kg

DRUGS (3)
  1. VELCADE [Suspect]
     Indication: MULTIPLE MYELOMA
     Dosage: 1.30 MG/M2, 2/WEEK
     Route: 042
     Dates: start: 20050805, end: 20050825
  2. ADRIAMYCIN PFS [Suspect]
     Indication: MULTIPLE MYELOMA
     Dosage: 9.00 MG/M2, UNK
     Route: 042
     Dates: start: 20050805, end: 20050812
  3. DEXAMETHASONE [Suspect]
     Indication: MULTIPLE MYELOMA
     Dosage: 40.00 MG, UNK
     Route: 048
     Dates: start: 20050805, end: 20050903

REACTIONS (4)
  - DEATH [None]
  - HERPES SIMPLEX [None]
  - PERIPHERAL SENSORY NEUROPATHY [None]
  - UPPER RESPIRATORY TRACT INFECTION [None]
